FAERS Safety Report 7533181-1 (Version None)
Quarter: 2011Q2

REPORT INFORMATION
  Report Type: 
  Country: None (occurrence: None)
  Receive Date: 20110608
  Receipt Date: 20090917
  Transmission Date: 20111010
  Serious: Yes (Death, Other)
  Sender: FDA-Public Use
  Company Number: US-BAYER-200937886NA

PATIENT
  Age: 77 Year
  Sex: Male
  Weight: 76 kg

DRUGS (21)
  1. METOPROLOL [Concomitant]
     Dosage: 25 MG, BID
     Route: 048
  2. NORVASC [Concomitant]
     Dosage: 5 MG, QD
     Route: 048
  3. LEVOPHED [Concomitant]
     Dosage: 20/30 MG
     Route: 042
     Dates: start: 20070807, end: 20070807
  4. PRIMACOR [Concomitant]
     Dosage: 0.2 MG, UNK
     Route: 042
     Dates: start: 20070807, end: 20070807
  5. VASOPRESSIN [Concomitant]
     Dosage: 22 MG, UNK
     Route: 042
     Dates: start: 20070807, end: 20070807
  6. PLAVIX [Concomitant]
     Dosage: 75 MG, QD
     Route: 048
  7. SIMVASTATIN [Concomitant]
     Dosage: 80 MG, QD
     Route: 048
  8. ZOFRAN [Concomitant]
     Dosage: 4 MG, UNK
     Route: 042
     Dates: start: 20070807, end: 20070807
  9. DOPAMINE HCL [Concomitant]
     Dosage: 6 MG, UNK
     Route: 042
     Dates: start: 20070807, end: 20070807
  10. TRASYLOL [Suspect]
     Indication: AORTIC VALVE REPLACEMENT
  11. VERSED [Concomitant]
     Dosage: 10 MG, UNK
     Route: 042
     Dates: start: 20070807, end: 20070807
  12. TRASYLOL [Suspect]
     Indication: CORONARY ARTERY BYPASS
  13. METFORMIN HCL [Concomitant]
     Dosage: 500 MG, BID
     Route: 048
  14. LASIX [Concomitant]
     Dosage: 40 MG, UNK
     Route: 048
  15. HEPARIN [Concomitant]
     Dosage: 1,000 30 ML
     Route: 042
     Dates: start: 20070807, end: 20070807
  16. MARCAINE [Concomitant]
     Dosage: 0.25 % WITH EPINEPHRINE
     Dates: start: 20070807, end: 20070807
  17. TRASYLOL [Suspect]
     Indication: STERNOTOMY
     Dosage: 200ML BOLUS THEN 50 ML BOLUS X 2
     Route: 042
     Dates: start: 20070807, end: 20070807
  18. ACETYLSALICYLIC ACID SRT [Concomitant]
     Dosage: 81 MG, QD
     Route: 048
  19. TRASYLOL [Suspect]
     Indication: MITRAL VALVE REPAIR
  20. ALTACE [Concomitant]
     Dosage: 2.5 MG, QD
     Route: 048
  21. ACTOS [Concomitant]
     Dosage: 30 MG, QD
     Route: 048

REACTIONS (13)
  - FEAR [None]
  - PAIN [None]
  - DEATH [None]
  - STRESS [None]
  - UNEVALUABLE EVENT [None]
  - INJURY [None]
  - RENAL FAILURE [None]
  - RENAL INJURY [None]
  - EMOTIONAL DISTRESS [None]
  - ANXIETY [None]
  - MULTI-ORGAN FAILURE [None]
  - ANHEDONIA [None]
  - RENAL IMPAIRMENT [None]
